FAERS Safety Report 17683228 (Version 3)
Quarter: 2020Q2

REPORT INFORMATION
  Report Type: Report from Study
  Country: FR (occurrence: FR)
  Receive Date: 20200420
  Receipt Date: 20200511
  Transmission Date: 20200714
  Serious: Yes (Death, Other)
  Sender: FDA-Public Use
  Company Number: FR-ADVANZ PHARMA-202004002752

PATIENT

DRUGS (7)
  1. HYDROXYCHLOROQUINE [Suspect]
     Active Substance: HYDROXYCHLOROQUINE
     Dosage: 400 MG, QD (FILM-COATED TABLET)
     Route: 048
     Dates: start: 20200401, end: 20200403
  2. CORDARONE [Suspect]
     Active Substance: AMIODARONE HYDROCHLORIDE
     Dosage: 900 MG, QD
     Route: 042
     Dates: start: 20200403, end: 20200404
  3. ANAKLNRA [Concomitant]
     Dosage: UNK
     Dates: start: 20200330
  4. CORDARONE [Suspect]
     Active Substance: AMIODARONE HYDROCHLORIDE
     Indication: ARRHYTHMIA
     Dosage: 600 MG, QD
     Route: 042
     Dates: start: 20200330, end: 20200402
  5. NORADRENALINE [Concomitant]
     Active Substance: NOREPINEPHRINE
     Indication: SHOCK
     Dosage: UNK
     Dates: start: 20200330
  6. HYDROXYCHLOROQUINE [Suspect]
     Active Substance: HYDROXYCHLOROQUINE
     Indication: COVID-19
     Dosage: 600 MG, QD (FILM-COATED TABLET)
     Route: 048
     Dates: start: 20200330, end: 20200331
  7. ASPIRINA [Concomitant]
     Active Substance: ASPIRIN
     Dosage: UNK
     Dates: start: 20200330

REACTIONS (2)
  - Shock [Fatal]
  - Off label use [Unknown]

NARRATIVE: CASE EVENT DATE: 20200330
